FAERS Safety Report 4951365-3 (Version None)
Quarter: 2006Q1

REPORT INFORMATION
  Report Type: 
  Country: None (occurrence: None)
  Receive Date: 20060317
  Receipt Date: 20060313
  Transmission Date: 20060701
  Serious: Yes (Other)
  Sender: FDA-Public Use
  Company Number: 006884

PATIENT
  Age: 51 Year
  Sex: Female

DRUGS (3)
  1. MEDROXYPROGESTERONE ACETATE [Suspect]
     Dosage: ORAL
     Route: 048
     Dates: start: 20000101, end: 20010101
  2. PREMARIN [Suspect]
     Dosage: ORAL
     Route: 048
     Dates: start: 20000101, end: 20010101
  3. PREMPRO [Suspect]
     Dosage: ORAL
     Route: 048
     Dates: start: 20010101, end: 20040101

REACTIONS (1)
  - BREAST CANCER FEMALE [None]
